FAERS Safety Report 24259563 (Version 5)
Quarter: 2024Q4

REPORT INFORMATION
  Report Type: Spontaneous
  Country: US (occurrence: US)
  Receive Date: 20240828
  Receipt Date: 20241105
  Transmission Date: 20250114
  Serious: No
  Sender: BRISTOL-MYERS SQUIBB COMPANY
  Company Number: US-BRISTOL-MYERS SQUIBB COMPANY-2024-132760

PATIENT
  Age: 68 Year
  Sex: Female

DRUGS (3)
  1. LENALIDOMIDE [Suspect]
     Active Substance: LENALIDOMIDE
     Indication: Plasma cell myeloma
     Route: 048
     Dates: start: 20240815, end: 20240817
  2. LENALIDOMIDE [Suspect]
     Active Substance: LENALIDOMIDE
     Route: 048
     Dates: start: 20240815, end: 20240817
  3. ZYRTEC [Suspect]
     Active Substance: CETIRIZINE HYDROCHLORIDE
     Indication: Rash

REACTIONS (18)
  - Rash pruritic [Recovering/Resolving]
  - Product storage error [Unknown]
  - Bowel movement irregularity [Unknown]
  - Dyspnoea [Unknown]
  - Fatigue [Unknown]
  - Gout [Unknown]
  - Decreased appetite [Unknown]
  - Feeling hot [Unknown]
  - Off label use [Unknown]
  - Tremor [Recovering/Resolving]
  - Psychomotor hyperactivity [Recovering/Resolving]
  - Nervousness [Recovering/Resolving]
  - Logorrhoea [Recovering/Resolving]
  - Chest discomfort [Not Recovered/Not Resolved]
  - Feeling abnormal [Not Recovered/Not Resolved]
  - Product dose omission issue [Unknown]
  - Paraesthesia [Unknown]
  - Joint swelling [Unknown]
